FAERS Safety Report 9222353 (Version 1)
Quarter: 2013Q2

REPORT INFORMATION
  Report Type: Spontaneous
  Country: US (occurrence: US)
  Receive Date: 20130410
  Receipt Date: 20130410
  Transmission Date: 20140414
  Serious: No
  Sender: FDA-Public Use
  Company Number: US-009507513-1304USA003267

PATIENT
  Sex: Male

DRUGS (2)
  1. SAPHRIS [Suspect]
     Indication: MANIA
     Route: 060
  2. SAPHRIS [Suspect]
     Indication: BIPOLAR DISORDER

REACTIONS (2)
  - Depression [Not Recovered/Not Resolved]
  - Hypersomnia [Not Recovered/Not Resolved]
